FAERS Safety Report 11158541 (Version 1)
Quarter: 2015Q2

REPORT INFORMATION
  Report Type: Spontaneous
  Country: FR (occurrence: FR)
  Receive Date: 20150603
  Receipt Date: 20150603
  Transmission Date: 20150821
  Serious: Yes (Hospitalization)
  Sender: FDA-Public Use
  Company Number: FR-SA-2015SA074238

PATIENT
  Age: 89 Year
  Sex: Female

DRUGS (8)
  1. LOVENOX [Suspect]
     Active Substance: ENOXAPARIN SODIUM
     Indication: PULMONARY EMBOLISM
     Route: 058
     Dates: start: 20131123, end: 20131128
  2. EFFEXOR [Concomitant]
     Active Substance: VENLAFAXINE HYDROCHLORIDE
  3. PREVISCAN [Interacting]
     Active Substance: FLUINDIONE
     Indication: PULMONARY EMBOLISM
     Route: 048
     Dates: start: 20131123, end: 20131219
  4. AMLOR [Concomitant]
     Active Substance: AMLODIPINE BESYLATE
  5. CIMETIDINE [Interacting]
     Active Substance: CIMETIDINE
     Dosage: FORM: EFFERVESCENT TABLET
     Route: 048
     Dates: start: 20131125, end: 20131202
  6. CALCIDOSE VITAMINE D [Concomitant]
     Active Substance: CALCIUM\CHOLECALCIFEROL
  7. FLUVASTATIN [Concomitant]
     Active Substance: FLUVASTATIN SODIUM
  8. ADROVANCE [Concomitant]
     Active Substance: ALENDRONATE SODIUM\CHOLECALCIFEROL

REACTIONS (6)
  - Malaise [Recovered/Resolved]
  - Pelvic haematoma [Recovered/Resolved]
  - Fall [Recovered/Resolved]
  - Anaemia [Recovered/Resolved]
  - Drug interaction [Unknown]
  - Hypotension [Recovered/Resolved]

NARRATIVE: CASE EVENT DATE: 20131203
